FAERS Safety Report 17848301 (Version 1)
Quarter: 2020Q2

REPORT INFORMATION
  Report Type: Report from Study
  Country: None (occurrence: US)
  Receive Date: 20200602
  Receipt Date: 20200602
  Transmission Date: 20200714
  Serious: Yes (Hospitalization)
  Sender: FDA-Public Use
  Company Number: US-ABBVIE-19K-163-2807230-00

PATIENT
  Age: 63 Year
  Sex: Female

DRUGS (1)
  1. HUMIRA [Suspect]
     Active Substance: ADALIMUMAB
     Indication: RHEUMATOID ARTHRITIS
     Route: 058
     Dates: start: 20190521

REACTIONS (22)
  - Dyspnoea [Recovering/Resolving]
  - Arthritis [Unknown]
  - Pain [Unknown]
  - Back pain [Unknown]
  - Rhinorrhoea [Unknown]
  - Rash [Unknown]
  - Blood pressure inadequately controlled [Recovering/Resolving]
  - Joint swelling [Unknown]
  - Musculoskeletal stiffness [Unknown]
  - Headache [Unknown]
  - Gait disturbance [Unknown]
  - Joint stiffness [Recovering/Resolving]
  - Arthralgia [Recovering/Resolving]
  - Musculoskeletal pain [Recovered/Resolved]
  - Therapeutic response shortened [Unknown]
  - Loss of personal independence in daily activities [Unknown]
  - Scab [Recovering/Resolving]
  - Chest pain [Unknown]
  - Fatigue [Not Recovered/Not Resolved]
  - Mobility decreased [Unknown]
  - Pain in extremity [Recovered/Resolved]
  - Stress [Unknown]

NARRATIVE: CASE EVENT DATE: 2019
